FAERS Safety Report 9746467 (Version 1)
Quarter: 2013Q4

REPORT INFORMATION
  Report Type: Spontaneous
  Country: NZ (occurrence: None)
  Receive Date: 20131209
  Receipt Date: 20131209
  Transmission Date: 20140711
  Serious: Yes (Hospitalization)
  Sender: FDA-Public Use
  Company Number: None

PATIENT
  Age: 60 Year
  Sex: Female
  Weight: 85 kg

DRUGS (1)
  1. CITALOPRAM 20 MG [Suspect]
     Indication: POST-TRAUMATIC STRESS DISORDER
     Route: 048
     Dates: start: 20101201, end: 20131208

REACTIONS (5)
  - Syncope [None]
  - Heart rate irregular [None]
  - Chest discomfort [None]
  - Feeling abnormal [None]
  - Pain [None]
